FAERS Safety Report 24061489 (Version 1)
Quarter: 2024Q3

REPORT INFORMATION
  Report Type: Report from Study
  Country: US (occurrence: US)
  Receive Date: 20240708
  Receipt Date: 20240708
  Transmission Date: 20241017
  Serious: Yes (Death, Other)
  Sender: BIOVITRUM
  Company Number: US-BIOVITRUM-2024-US-009565

PATIENT
  Age: 64 Year
  Sex: Female

DRUGS (1)
  1. KINERET [Suspect]
     Active Substance: ANAKINRA
     Indication: Gout
     Dosage: EVERY OTHER DAY FOR A TOTAL OF 6 DAYS AS NEEDED FOR GOUT FLARES
     Route: 058
     Dates: start: 20230722

REACTIONS (1)
  - Death [Fatal]
